FAERS Safety Report 7738479-X (Version None)
Quarter: 2011Q3

REPORT INFORMATION
  Report Type: 
  Country: None (occurrence: None)
  Receive Date: 20110908
  Receipt Date: 20110823
  Transmission Date: 20111222
  Serious: Yes (Disabling, Other)
  Sender: FDA-Public Use
  Company Number: BR-US-EMD SERONO, INC.-7081552

PATIENT
  Sex: Male

DRUGS (8)
  1. LOSARTAN POTASSIUM [Concomitant]
  2. AMIODARONE HYDROCHLORIDE [Concomitant]
  3. VASTAREL (TRIMETAZIDINE) [Concomitant]
  4. AMYTRIL [Concomitant]
  5. TYRPTANOL (AMITRIPTYLINE) [Concomitant]
  6. REBIF [Suspect]
     Indication: SECONDARY PROGRESSIVE MULTIPLE SCLEROSIS
     Dates: start: 20040101
  7. DIAZEPAM [Concomitant]
  8. ALOIS [Concomitant]

REACTIONS (4)
  - LOCALISED INFECTION [None]
  - LIMB INJURY [None]
  - WHEELCHAIR USER [None]
  - URINARY INCONTINENCE [None]
